FAERS Safety Report 19686313 (Version 2)
Quarter: 2021Q3

REPORT INFORMATION
  Report Type: Spontaneous
  Country: US (occurrence: US)
  Receive Date: 20210811
  Receipt Date: 20210910
  Transmission Date: 20211014
  Serious: Yes (Hospitalization, Other)
  Sender: FDA-Public Use
  Company Number: US-PFIZER INC-202100986052

PATIENT
  Age: 50 Year
  Sex: Male

DRUGS (1)
  1. NIVESTYM [Suspect]
     Active Substance: FILGRASTIM-AAFI
     Dosage: UNK, CYCLIC (CYCLE EVERY 25 DAYS)

REACTIONS (3)
  - Neutropenia [Unknown]
  - Neutropenic colitis [Unknown]
  - Leukopenia [Unknown]

NARRATIVE: CASE EVENT DATE: 201611
